FAERS Safety Report 9461648 (Version 3)
Quarter: 2013Q3

REPORT INFORMATION
  Report Type: Report from Study
  Country: CA (occurrence: CA)
  Receive Date: 20130816
  Receipt Date: 20130827
  Transmission Date: 20140515
  Serious: Yes (Hospitalization, Other)
  Sender: FDA-Public Use
  Company Number: CA-UCBSA-095281

PATIENT
  Age: 44 Year
  Sex: Female
  Weight: 82 kg

DRUGS (3)
  1. CIMZIA [Suspect]
     Indication: RHEUMATOID ARTHRITIS
     Route: 058
     Dates: start: 20121019, end: 20121116
  2. CIMZIA [Suspect]
     Indication: RHEUMATOID ARTHRITIS
     Route: 058
     Dates: start: 20121130, end: 20130724
  3. METHOTREXATE [Concomitant]

REACTIONS (4)
  - Sepsis [Recovered/Resolved]
  - Urosepsis [Recovered/Resolved]
  - Drug-induced liver injury [Recovering/Resolving]
  - Cholelithiasis [Recovering/Resolving]
